FAERS Safety Report 11814197 (Version 9)
Quarter: 2016Q4

REPORT INFORMATION
  Report Type: Spontaneous
  Country: US (occurrence: US)
  Receive Date: 20151209
  Receipt Date: 20161216
  Transmission Date: 20170206
  Serious: No
  Sender: FDA-Public Use
  Company Number: US-009507513-1512USA005101

PATIENT
  Sex: Female
  Weight: 84.35 kg

DRUGS (1)
  1. IMPLANON [Suspect]
     Active Substance: ETONOGESTREL
     Indication: CONTRACEPTION
     Dosage: 68 MG/ 3 YEARS
     Route: 059
     Dates: start: 20110620, end: 20160208

REACTIONS (11)
  - Dysmenorrhoea [Unknown]
  - Polymenorrhoea [Unknown]
  - Menorrhagia [Unknown]
  - Ovarian cyst [Unknown]
  - Device difficult to use [Recovered/Resolved]
  - Dyspareunia [Unknown]
  - Weight increased [Unknown]
  - Complication associated with device [Recovered/Resolved]
  - Complication of device removal [Recovered/Resolved]
  - Drug ineffective [Unknown]
  - Incorrect drug administration duration [Recovered/Resolved]

NARRATIVE: CASE EVENT DATE: 2012
